FAERS Safety Report 6150652-3 (Version None)
Quarter: 2009Q2

REPORT INFORMATION
  Report Type: 
  Country: None (occurrence: None)
  Receive Date: 20090408
  Receipt Date: 20090408
  Transmission Date: 20091009
  Serious: Yes (Other)
  Sender: FDA-Public Use
  Company Number: None

PATIENT
  Age: 79 Year
  Sex: Male
  Weight: 60 kg

DRUGS (3)
  1. ISOKET RETARD (ISOKET RETARD) [Suspect]
     Indication: CORONARY ARTERY DISEASE
     Dosage: 40 MG QD ORAL
     Route: 048
     Dates: start: 20090213
  2. METHOTREXATE SODIUM [Concomitant]
  3. PREDNISOLONE [Concomitant]

REACTIONS (2)
  - ANGIOEDEMA [None]
  - EYELID OEDEMA [None]
